FAERS Safety Report 24256031 (Version 1)
Quarter: 2024Q3

REPORT INFORMATION
  Report Type: Spontaneous
  Country: US (occurrence: US)
  Receive Date: 20240827
  Receipt Date: 20240827
  Transmission Date: 20241017
  Serious: Yes (Death, Hospitalization)
  Sender: FRESENIUS MEDICAL CARE
  Company Number: US-FMCRTG-FMC-2408-001007

PATIENT
  Age: 79 Year
  Sex: Female
  Weight: 104.0 kg

DRUGS (3)
  1. DELFLEX WITH DEXTROSE 1.5% LOW MAGNESIUM LOW CALCIUM [Suspect]
     Active Substance: CALCIUM CHLORIDE\DEXTROSE\MAGNESIUM CHLORIDE\SODIUM CHLORIDE\SODIUM LACTATE
     Indication: End stage renal disease
     Dosage: 6 DAYS-A-WEEK, EXCHANGES = 5, FILL VOLUME = 2000 ML, DWELL TIME = 1.75 HOURS, LAST FILL = N/A, DAYTI
     Route: 033
  2. DELFLEX WITH DEXTROSE 2.5% LOW MAGNESIUM LOW CALCIUM [Suspect]
     Active Substance: CALCIUM CHLORIDE\DEXTROSE\MAGNESIUM CHLORIDE\SODIUM CHLORIDE\SODIUM LACTATE
     Indication: End stage renal disease
     Dosage: 6 DAYS-A-WEEK, EXCHANGES = 5, FILL VOLUME = 2000 ML, DWELL TIME = 1.75 HOURS, LAST FILL = N/A, DAYTI
     Route: 033
  3. DELFLEX WITH DEXTROSE 4.25% LOW MAGNESIUM LOW CALCIUM [Suspect]
     Active Substance: CALCIUM CHLORIDE\DEXTROSE\MAGNESIUM CHLORIDE\SODIUM CHLORIDE\SODIUM LACTATE
     Indication: End stage renal disease
     Dosage: 6 DAYS-A-WEEK, EXCHANGES = 5, FILL VOLUME = 2000 ML, DWELL TIME = 1.75 HOURS, LAST FILL = N/A, DAYTI
     Route: 033

REACTIONS (2)
  - Sepsis [Fatal]
  - Gastrointestinal haemorrhage [Unknown]

NARRATIVE: CASE EVENT DATE: 20240801
